FAERS Safety Report 4637590-X (Version None)
Quarter: 2005Q2

REPORT INFORMATION
  Report Type: 
  Country: None (occurrence: None)
  Receive Date: 20050325
  Receipt Date: 20041123
  Transmission Date: 20051028
  Serious: No
  Sender: FDA-Public Use
  Company Number: USA041184519

PATIENT
  Age: 65 Year
  Sex: Female
  Weight: 67 kg

DRUGS (4)
  1. FORTEO [Suspect]
     Indication: OSTEOPOROSIS
     Dosage: 20 UG DAY
     Dates: start: 20040201
  2. NORVASC [Concomitant]
  3. DIOVAN [Concomitant]
  4. PROTONIX [Concomitant]

REACTIONS (3)
  - BENIGN GASTRIC NEOPLASM [None]
  - BLOOD GLUCOSE ABNORMAL [None]
  - GASTRIC DISORDER [None]
